FAERS Safety Report 6999493-5 (Version None)
Quarter: 2010Q3

REPORT INFORMATION
  Report Type: 
  Country: None (occurrence: None)
  Receive Date: 20100920
  Receipt Date: 20070620
  Transmission Date: 20110219
  Serious: Yes (Other)
  Sender: FDA-Public Use
  Company Number: US-ASTRAZENECA-2006UW24160

PATIENT
  Age: 547 Month
  Sex: Female
  Weight: 78 kg

DRUGS (15)
  1. SEROQUEL [Suspect]
     Indication: SCHIZOPHRENIA
     Dosage: 25-400 MG AT NIGHT
     Route: 048
     Dates: start: 20050511
  2. SEROQUEL [Suspect]
     Indication: SCHIZOPHRENIA, PARANOID TYPE
     Dosage: 25-400 MG AT NIGHT
     Route: 048
     Dates: start: 20050511
  3. SEROQUEL [Suspect]
     Route: 048
  4. SEROQUEL [Suspect]
     Route: 048
  5. HALDOL [Concomitant]
  6. NAVANE [Concomitant]
  7. RISPERDAL [Concomitant]
  8. TRILAFON [Concomitant]
     Route: 048
     Dates: start: 20060103
  9. ZYPREXA [Concomitant]
     Indication: SCHIZOPHRENIA
     Dosage: 7.5-15 MG
     Route: 048
     Dates: start: 19980922
  10. WELLBUTRIN [Concomitant]
     Dosage: 100-200 MG
     Route: 048
     Dates: start: 20040813
  11. MARIJUANA [Concomitant]
     Dates: start: 19740101, end: 19850101
  12. COCAINE [Concomitant]
     Dates: start: 19850101, end: 19900101
  13. PREMARIN [Concomitant]
     Route: 048
     Dates: start: 19930826
  14. ALBUTEROL [Concomitant]
     Dosage: 90 MCG, 2-8 PUFFS
     Dates: start: 20021018
  15. LOVASTATIN [Concomitant]
     Route: 048
     Dates: start: 20031229

REACTIONS (3)
  - DIABETES MELLITUS [None]
  - PANCREATITIS [None]
  - TARDIVE DYSKINESIA [None]
